FAERS Safety Report 9362868 (Version 1)
Quarter: 2013Q2

REPORT INFORMATION
  Report Type: Spontaneous
  Country: US (occurrence: None)
  Receive Date: 20130618
  Receipt Date: 20130618
  Transmission Date: 20140414
  Serious: Yes (Death)
  Sender: FDA-Public Use
  Company Number: ADR-2013UNK082

PATIENT
  Age: 56 Year
  Sex: Female

DRUGS (9)
  1. MEPROBAMATE [Suspect]
     Route: 048
  2. TRAMADOL [Concomitant]
  3. BUTALBITAL [Concomitant]
  4. ZOLPIDEM [Concomitant]
  5. CARISOPRODOL [Concomitant]
  6. TEMAZEPAM [Concomitant]
  7. HYDROCODONE [Concomitant]
  8. DIPHENHYDRAMINE [Concomitant]
  9. CITALOPRAM [Concomitant]

REACTIONS (2)
  - Toxicity to various agents [None]
  - Completed suicide [None]
